FAERS Safety Report 24358383 (Version 2)
Quarter: 2025Q3

REPORT INFORMATION
  Report Type: Spontaneous
  Country: EU (occurrence: EU)
  Receive Date: 20240924
  Receipt Date: 20250708
  Transmission Date: 20251020
  Serious: Yes (Hospitalization, Other)
  Sender: PFIZER
  Company Number: None

PATIENT
  Age: 71 Year
  Sex: Male
  Weight: 65 kg

DRUGS (10)
  1. RITUXIMAB [Suspect]
     Active Substance: RITUXIMAB
     Indication: Thrombocytopenia
     Route: 042
     Dates: start: 20240208, end: 20240208
  2. RUXOLITINIB [Suspect]
     Active Substance: RUXOLITINIB
     Indication: Myelofibrosis
     Dosage: 20 MG, 1X/DAY
     Route: 048
     Dates: start: 20240209, end: 20240725
  3. KARDEGIC [Concomitant]
     Active Substance: ASPIRIN DL-LYSINE
     Dosage: 75 MG, 1X/DAY
  4. HYDROCHLOROTHIAZIDE\RAMIPRIL [Concomitant]
     Active Substance: HYDROCHLOROTHIAZIDE\RAMIPRIL
     Dosage: 2 DF, DAILY
  5. AMLODIPINE [Concomitant]
     Active Substance: AMLODIPINE BESYLATE
     Dosage: 5 MG, 1X/DAY
  6. RUXOLITINIB [Concomitant]
     Active Substance: RUXOLITINIB
     Dosage: 2 DF, DAILY
  7. FOLIC ACID [Concomitant]
     Active Substance: FOLIC ACID
     Dosage: 5 MG, 1X/DAY
  8. ACETAMINOPHEN [Concomitant]
     Active Substance: ACETAMINOPHEN
  9. NOVORAPID [Concomitant]
     Active Substance: INSULIN ASPART
     Dosage: 14 IU, 3X/DAY
  10. TOUJEO [Concomitant]
     Active Substance: INSULIN GLARGINE
     Dosage: 16 IU, 1X/DAY, EVENING

REACTIONS (5)
  - Rash vesicular [Recovered/Resolved with Sequelae]
  - Post herpetic neuralgia [Recovered/Resolved with Sequelae]
  - Acute sinusitis [Recovered/Resolved]
  - Scleritis [Recovered/Resolved]
  - Off label use [Unknown]

NARRATIVE: CASE EVENT DATE: 20240208
